FAERS Safety Report 24074325 (Version 1)
Quarter: 2024Q3

REPORT INFORMATION
  Report Type: Report from Study
  Country: DE (occurrence: DE)
  Receive Date: 20240710
  Receipt Date: 20240710
  Transmission Date: 20241016
  Serious: Yes (Hospitalization)
  Sender: PFIZER
  Company Number: DE-SEATTLE GENETICS-2021SGN00523

PATIENT
  Age: 52 Year
  Sex: Female
  Weight: 82 kg

DRUGS (18)
  1. TUCATINIB [Suspect]
     Active Substance: TUCATINIB
     Indication: HER2 positive breast cancer
     Dosage: 300 MG, BID
     Route: 048
  2. TUCATINIB [Suspect]
     Active Substance: TUCATINIB
     Dosage: 150 MG, QD
     Route: 048
     Dates: start: 20210115, end: 20210205
  3. TRASTUZUMAB [Suspect]
     Active Substance: TRASTUZUMAB
     Indication: HER2 positive breast cancer
     Dosage: 8 MG/KG, SINGLE
  4. TRASTUZUMAB [Suspect]
     Active Substance: TRASTUZUMAB
     Dosage: 6 MG/KG, EVERY 3 WEEKS
  5. TRASTUZUMAB [Suspect]
     Active Substance: TRASTUZUMAB
     Dosage: 600 MG, EVERY 3 WEEKS
     Route: 058
     Dates: start: 20210115, end: 20210226
  6. CAPECITABINE [Suspect]
     Active Substance: CAPECITABINE
     Indication: HER2 positive breast cancer
     Dosage: 1000 MG/M2, EVERY 3 WEEKS
     Route: 048
     Dates: start: 20210115, end: 20210220
  7. CAPECITABINE [Suspect]
     Active Substance: CAPECITABINE
     Dosage: 1000 MG/M2, 2X/DAY
     Route: 048
  8. DENOSUMAB [Concomitant]
     Active Substance: DENOSUMAB
     Dosage: Q4WEEKS
     Route: 058
     Dates: start: 201901
  9. EDOXABAN TOSYLATE [Concomitant]
     Active Substance: EDOXABAN TOSYLATE
     Dosage: 60 MG, QD
  10. BISOPROLOL [Concomitant]
     Active Substance: BISOPROLOL\BISOPROLOL FUMARATE
     Dosage: 5 MG, BID
  11. AMLODIPINE [Concomitant]
     Active Substance: AMLODIPINE BESYLATE
     Dosage: 5 MG, QPM
  12. PANTROZOLE [Concomitant]
     Dosage: 40 MG AS NEEDED
  13. LEVOTHYROXINE SODIUM [Concomitant]
     Active Substance: LEVOTHYROXINE SODIUM
     Dosage: 150 ?G, BID
  14. TORSEMIDE [Concomitant]
     Active Substance: TORSEMIDE
     Dosage: 5 MG, QD
  15. VITAMIN B [Concomitant]
     Active Substance: VITAMIN B
     Dosage: 620 MG, QD
  16. ZOPICLONE [Concomitant]
     Active Substance: ZOPICLONE
     Dosage: 7.5 MG
  17. NOVALGIN                           /00169801/ [Concomitant]
     Dosage: 50 MG, AS NEEDED
  18. TILIDINE [Concomitant]
     Active Substance: TILIDINE
     Dosage: 4 MG, AS NEEDED

REACTIONS (2)
  - Infection [Recovered/Resolved]
  - Hepatotoxicity [Recovering/Resolving]

NARRATIVE: CASE EVENT DATE: 20210205
